FAERS Safety Report 11831056 (Version 1)
Quarter: 2015Q4

REPORT INFORMATION
  Report Type: Spontaneous
  Country: UG (occurrence: UG)
  Receive Date: 20151214
  Receipt Date: 20151214
  Transmission Date: 20160305
  Serious: Yes (Other)
  Sender: FDA-Public Use
  Company Number: UG-STRIDES ARCOLAB LIMITED-2015SP002180

PATIENT

DRUGS (3)
  1. ZIDOVUDINE. [Suspect]
     Active Substance: ZIDOVUDINE
     Indication: HIV INFECTION
     Dosage: UNK
  2. LAMIVUDINE. [Suspect]
     Active Substance: LAMIVUDINE
     Indication: HIV INFECTION
     Dosage: UNK
  3. NEVIRAPINE. [Suspect]
     Active Substance: NEVIRAPINE
     Indication: HIV INFECTION
     Dosage: UNK

REACTIONS (16)
  - Left ventricular dysfunction [Recovered/Resolved]
  - Dyspnoea [Recovered/Resolved]
  - Left ventricular heave [Recovered/Resolved]
  - Muscular weakness [Unknown]
  - Intracardiac thrombus [Recovered/Resolved]
  - Liver tenderness [Recovered/Resolved]
  - Haemoptysis [Recovered/Resolved]
  - Heart sounds abnormal [Recovered/Resolved]
  - Congestive cardiomyopathy [Recovered/Resolved]
  - Crepitations [Recovered/Resolved]
  - Cardiomegaly [Recovered/Resolved]
  - Cough [Recovered/Resolved]
  - Tachycardia [Recovered/Resolved]
  - Pulse volume decreased [Recovered/Resolved]
  - Abdominal pain upper [Recovered/Resolved]
  - Treatment noncompliance [Unknown]
